FAERS Safety Report 21527002 (Version 2)
Quarter: 2022Q4

REPORT INFORMATION
  Report Type: Other
  Country: US (occurrence: None)
  Receive Date: 20221031
  Receipt Date: 20221102
  Transmission Date: 20230113
  Serious: Yes (Death)
  Sender: FDA-Public Use
  Company Number: US-ROCHE-3209340

PATIENT
  Age: 81 Year
  Sex: Female

DRUGS (3)
  1. KADCYLA [Suspect]
     Active Substance: ADO-TRASTUZUMAB EMTANSINE
     Indication: Breast cancer metastatic
     Dosage: INFUSE 294MG INTRAVENOUSLY EVERY 3 WEEK, FORMULATION: VIAL
     Route: 042
  2. KADCYLA [Suspect]
     Active Substance: ADO-TRASTUZUMAB EMTANSINE
     Indication: Metastases to bone
     Dosage: SIZE/STRENGTH: 3.6 MG/KG, QUANTITY: 338 MG
     Route: 042
  3. HERCEPTIN [Suspect]
     Active Substance: TRASTUZUMAB
     Indication: Product used for unknown indication
     Dosage: DATE OF SERVICE:03/NOV/2022, 17/NOV/2022, 01/DEC/2022, 15/DEC/2022, 29/DEC/2022
     Route: 065

REACTIONS (1)
  - Death [Fatal]
